FAERS Safety Report 5980012-7 (Version None)
Quarter: 2008Q4

REPORT INFORMATION
  Report Type: 
  Country: None (occurrence: None)
  Receive Date: 20081205
  Receipt Date: 20081202
  Transmission Date: 20090506
  Serious: Yes (Life-Threatening, Hospitalization, Congenital Anomaly)
  Sender: FDA-Public Use
  Company Number: US-JNJFOC-20081201305

PATIENT
  Sex: Male
  Weight: 3.7 kg

DRUGS (1)
  1. ORTHO CYCLEN-28 [Suspect]
     Indication: DRUG EXPOSURE DURING PREGNANCY

REACTIONS (2)
  - CRANIOSYNOSTOSIS [None]
  - PNEUMOTHORAX [None]
